FAERS Safety Report 5809741-2 (Version None)
Quarter: 2008Q3

REPORT INFORMATION
  Report Type: 
  Country: None (occurrence: None)
  Receive Date: 20080715
  Receipt Date: 20080708
  Transmission Date: 20090109
  Serious: Yes (Hospitalization)
  Sender: FDA-Public Use
  Company Number: ZA-ABBOTT-08P-143-0461927-00

PATIENT
  Age: 26 Year
  Sex: Male

DRUGS (1)
  1. EPILIM [Suspect]
     Indication: DRUG USE FOR UNKNOWN INDICATION

REACTIONS (3)
  - COMA [None]
  - DRUG LEVEL INCREASED [None]
  - INTENTIONAL OVERDOSE [None]
